FAERS Safety Report 9833068 (Version 1)
Quarter: 2014Q1

REPORT INFORMATION
  Report Type: Spontaneous
  Country: US (occurrence: US)
  Receive Date: 20140121
  Receipt Date: 20140121
  Transmission Date: 20141002
  Serious: Yes (Other)
  Sender: FDA-Public Use
  Company Number: US-UCBSA-108738

PATIENT
  Sex: Female

DRUGS (4)
  1. VIMPAT [Suspect]
     Indication: CONVULSION
  2. KEPPRA [Suspect]
     Indication: CONVULSION
  3. KEPPRA [Suspect]
     Indication: CONVULSION
     Dosage: DOSE INCREASED
  4. LAMICTAL [Concomitant]
     Indication: CONVULSION

REACTIONS (3)
  - Convulsion [Not Recovered/Not Resolved]
  - Partial seizures [Not Recovered/Not Resolved]
  - Depression [Unknown]
